FAERS Safety Report 22625671 (Version 1)
Quarter: 2023Q2

REPORT INFORMATION
  Report Type: Spontaneous
  Country: US (occurrence: None)
  Receive Date: 20230620
  Receipt Date: 20230620
  Transmission Date: 20230722
  Serious: Yes (Other)
  Sender: FDA-Public Use
  Company Number: None

PATIENT
  Age: 35 Year
  Sex: Female
  Weight: 157.5 kg

DRUGS (6)
  1. WEGOVY [Suspect]
     Active Substance: SEMAGLUTIDE
     Indication: Obesity
     Dosage: OTHER FREQUENCY : WEEKLY;?
     Route: 058
     Dates: start: 20230524
  2. WELLBUTRIN [Concomitant]
     Active Substance: BUPROPION HYDROCHLORIDE
  3. PROZAC [Concomitant]
     Active Substance: FLUOXETINE HYDROCHLORIDE
  4. PRILOSEC [Concomitant]
     Active Substance: OMEPRAZOLE MAGNESIUM
  5. DEVICE [Concomitant]
     Active Substance: DEVICE
  6. PRENATAL MULVITAMIN [Concomitant]

REACTIONS (1)
  - Abortion spontaneous [None]

NARRATIVE: CASE EVENT DATE: 20230620
